FAERS Safety Report 15252367 (Version 2)
Quarter: 2018Q4

REPORT INFORMATION
  Report Type: Spontaneous
  Country: US (occurrence: US)
  Receive Date: 20180807
  Receipt Date: 20181026
  Transmission Date: 20190204
  Serious: No
  Sender: FDA-Public Use
  Company Number: US-BAUSCH-BL-2018-020509

PATIENT
  Sex: Male
  Weight: 113.5 kg

DRUGS (4)
  1. DESMOPRESSIN ACETATE NASAL SOLUTION 0.01% [Suspect]
     Active Substance: DESMOPRESSIN ACETATE
     Dosage: 2 SPRAY AT EACH NOSTRILS AT NIGHT
  2. DESMOPRESSIN ACETATE NASAL SOLUTION 0.01% [Suspect]
     Active Substance: DESMOPRESSIN ACETATE
     Indication: ENURESIS
     Dosage: 2 SPRAY AT EACH NOSTRILS AT NIGHT
  3. LEXAPRO [Concomitant]
     Active Substance: ESCITALOPRAM OXALATE
     Indication: DEPRESSION
     Route: 048
  4. DESMOPRESSIN ACETATE NASAL SOLUTION 0.01% [Suspect]
     Active Substance: DESMOPRESSIN ACETATE
     Dosage: 2 SPRAY AT EACH NOSTRILS AT NIGHT

REACTIONS (2)
  - Drug ineffective [Recovered/Resolved]
  - Product quality issue [Recovered/Resolved]
